FAERS Safety Report 21209658 (Version 1)
Quarter: 2022Q3

REPORT INFORMATION
  Report Type: Spontaneous
  Country: AU (occurrence: AU)
  Receive Date: 20220813
  Receipt Date: 20220813
  Transmission Date: 20221026
  Serious: Yes (Hospitalization)
  Sender: FDA-Public Use
  Company Number: AU-TAKEDA-2022TUS054415

PATIENT
  Age: 18 Year
  Sex: Male

DRUGS (3)
  1. VYVANSE [Suspect]
     Active Substance: LISDEXAMFETAMINE DIMESYLATE
     Indication: Binge eating
     Dosage: UNK
     Route: 065
  2. AMPHETAMINE [Suspect]
     Active Substance: AMPHETAMINE
     Indication: Product used for unknown indication
     Route: 048
  3. VALDOXAN [Concomitant]
     Active Substance: AGOMELATINE
     Indication: Product used for unknown indication
     Route: 065

REACTIONS (6)
  - Binge eating [Recovering/Resolving]
  - Apathy [Recovering/Resolving]
  - Depression [Recovering/Resolving]
  - Drug effect less than expected [Recovering/Resolving]
  - Asthenia [Recovering/Resolving]
  - Depressed mood [Recovering/Resolving]
